FAERS Safety Report 4840305-3 (Version None)
Quarter: 2005Q4

REPORT INFORMATION
  Report Type: 
  Country: None (occurrence: None)
  Receive Date: 20051021
  Receipt Date: 20050914
  Transmission Date: 20060501
  Serious: Yes (Other)
  Sender: FDA-Public Use
  Company Number: 2005130327

PATIENT
  Sex: Male

DRUGS (3)
  1. INSPRA [Suspect]
     Indication: ILL-DEFINED DISORDER
  2. TOLTERODINE TARTRATE [Concomitant]
  3. SPIRONOLACTONE [Concomitant]

REACTIONS (1)
  - CONSTIPATION [None]
